FAERS Safety Report 8125054-0 (Version None)
Quarter: 2012Q1

REPORT INFORMATION
  Report Type: 
  Country: None (occurrence: None)
  Receive Date: 20120209
  Receipt Date: 20120129
  Transmission Date: 20120608
  Serious: Yes (Death)
  Sender: FDA-Public Use
  Company Number: IN-ROCHE-1035994

PATIENT
  Sex: Male

DRUGS (2)
  1. METALYSE [Suspect]
     Indication: ACUTE MYOCARDIAL INFARCTION
     Dosage: 40 MG
     Route: 042
     Dates: start: 20120126, end: 20120126
  2. HEPARIN [Concomitant]

REACTIONS (1)
  - DEATH [None]
